FAERS Safety Report 23239214 (Version 2)
Quarter: 2024Q1

REPORT INFORMATION
  Report Type: Report from Study
  Country: US (occurrence: US)
  Receive Date: 20231129
  Receipt Date: 20240117
  Transmission Date: 20240410
  Serious: No
  Sender: FDA-Public Use
  Company Number: US-002147023-NVSC2023US252985

PATIENT
  Age: 69 Year
  Sex: Female

DRUGS (1)
  1. ENTRESTO [Suspect]
     Active Substance: SACUBITRIL\VALSARTAN
     Indication: Product used for unknown indication
     Dosage: UNK, BID
     Route: 065
     Dates: start: 20231018

REACTIONS (4)
  - Weight loss poor [Not Recovered/Not Resolved]
  - Weight increased [Not Recovered/Not Resolved]
  - Throat clearing [Unknown]
  - Ejection fraction [Recovering/Resolving]

NARRATIVE: CASE EVENT DATE: 20231001
